FAERS Safety Report 10455947 (Version 1)
Quarter: 2014Q3

REPORT INFORMATION
  Report Type: Spontaneous
  Country: US (occurrence: None)
  Receive Date: 20140912
  Receipt Date: 20140912
  Transmission Date: 20150326
  Serious: Yes (Hospitalization)
  Sender: FDA-Public Use
  Company Number: C-14-114

PATIENT
  Age: 33 Year
  Sex: Female

DRUGS (1)
  1. PHENTERMINE [Suspect]
     Active Substance: PHENTERMINE
     Indication: OBESITY
     Dosage: UNK, UNK, UNK   UNK-UNK THERAPY

REACTIONS (7)
  - Blood glucose increased [None]
  - Quadriplegia [None]
  - Spinal cord infarction [None]
  - Areflexia [None]
  - Faecal incontinence [None]
  - Urinary incontinence [None]
  - Glycosylated haemoglobin increased [None]
